FAERS Safety Report 7639884-2 (Version None)
Quarter: 2011Q3

REPORT INFORMATION
  Report Type: 
  Country: None (occurrence: None)
  Receive Date: 20110727
  Receipt Date: 20110722
  Transmission Date: 20111222
  Serious: Yes (Death, Hospitalization, Other)
  Sender: FDA-Public Use
  Company Number: AT-ABBOTT-11P-009-0730784-00

PATIENT
  Sex: Male
  Weight: 81 kg

DRUGS (31)
  1. ZEMPLAR [Suspect]
     Indication: HYPERPARATHYROIDISM
     Dates: start: 20100630, end: 20101203
  2. ZEMPLAR [Suspect]
     Dosage: 1ST DOSE: 5MCG; 2ND: 10MCG; 3RD: 5MCG
     Dates: start: 20101210, end: 20110518
  3. NEORECORMON [Concomitant]
     Indication: PRODUCT USED FOR UNKNOWN INDICATION
     Route: 042
     Dates: start: 20100301, end: 20101024
  4. ASPIRIN [Concomitant]
     Indication: PRODUCT USED FOR UNKNOWN INDICATION
     Route: 048
     Dates: start: 20100923, end: 20110531
  5. CALCIUMACETAT [Concomitant]
     Route: 048
     Dates: start: 20100329, end: 20100525
  6. TEBOFORTAN [Concomitant]
     Indication: PRODUCT USED FOR UNKNOWN INDICATION
     Route: 048
     Dates: start: 20100101, end: 20110531
  7. PANTOPRAZOLE SODIUM [Concomitant]
     Indication: PRODUCT USED FOR UNKNOWN INDICATION
     Route: 048
     Dates: start: 20100401, end: 20110531
  8. MIRTABENE [Concomitant]
     Indication: PRODUCT USED FOR UNKNOWN INDICATION
     Route: 048
     Dates: start: 20100923, end: 20110531
  9. RENVELA [Concomitant]
     Indication: PRODUCT USED FOR UNKNOWN INDICATION
     Dosage: 3X2
     Route: 048
     Dates: start: 20101105, end: 20110531
  10. MOVIPREP [Concomitant]
     Indication: PRODUCT USED FOR UNKNOWN INDICATION
     Route: 048
     Dates: start: 20101222, end: 20110531
  11. MAGNONORM [Concomitant]
     Indication: PRODUCT USED FOR UNKNOWN INDICATION
     Route: 048
     Dates: start: 20100401, end: 20110531
  12. PRIDAX [Concomitant]
     Indication: PRODUCT USED FOR UNKNOWN INDICATION
     Route: 042
     Dates: start: 20101208, end: 20110209
  13. ZOLPIDEM TARTRATE [Concomitant]
     Indication: PRODUCT USED FOR UNKNOWN INDICATION
     Route: 048
     Dates: start: 20100401, end: 20110531
  14. PLAVIX [Concomitant]
     Indication: PRODUCT USED FOR UNKNOWN INDICATION
     Route: 048
     Dates: start: 20100923, end: 20101023
  15. MULTIVIT B [Concomitant]
     Indication: PRODUCT USED FOR UNKNOWN INDICATION
     Route: 042
     Dates: start: 20100503, end: 20110531
  16. CALCIJEX [Concomitant]
     Indication: HYPERPARATHYROIDISM SECONDARY
     Dates: end: 20110531
  17. OLEOVIT D3 [Concomitant]
     Indication: PRODUCT USED FOR UNKNOWN INDICATION
     Dosage: 20 GTT
     Route: 048
     Dates: start: 20100301, end: 20110531
  18. UROSIN [Concomitant]
     Indication: PRODUCT USED FOR UNKNOWN INDICATION
     Route: 048
     Dates: start: 20100601, end: 20110531
  19. FERRLECIT [Concomitant]
     Indication: PRODUCT USED FOR UNKNOWN INDICATION
     Route: 042
     Dates: start: 20100301, end: 20100908
  20. RENAGEL [Concomitant]
     Dosage: 3X2
     Route: 048
     Dates: start: 20100625, end: 20101105
  21. CALCIJEX [Concomitant]
     Route: 042
     Dates: start: 20100416, end: 20101228
  22. AQUAPHORIL [Concomitant]
     Indication: PRODUCT USED FOR UNKNOWN INDICATION
     Route: 048
     Dates: start: 20100301, end: 20110531
  23. BISOPROLOL FUMARATE [Concomitant]
     Indication: PRODUCT USED FOR UNKNOWN INDICATION
     Route: 048
     Dates: start: 20100601, end: 20110531
  24. SPIRIVA [Concomitant]
     Indication: PRODUCT USED FOR UNKNOWN INDICATION
     Route: 055
     Dates: start: 20100301, end: 20110531
  25. SERETIDE FORTE [Concomitant]
     Indication: PRODUCT USED FOR UNKNOWN INDICATION
     Dosage: 25/250 MCG
     Route: 055
     Dates: start: 20100301, end: 20110531
  26. NEORECORMON [Concomitant]
     Route: 030
     Dates: start: 20101025, end: 20110531
  27. ISOMONAT RETARD [Concomitant]
     Indication: PRODUCT USED FOR UNKNOWN INDICATION
     Route: 048
     Dates: start: 20100901, end: 20110531
  28. CALCIUMACETAT [Concomitant]
     Indication: HYPERPARATHYROIDISM SECONDARY
     Dates: end: 20110531
  29. RENAGEL [Concomitant]
     Indication: HYPERPARATHYROIDISM SECONDARY
     Dates: end: 20110531
  30. ALNA RETARD [Concomitant]
     Indication: PRODUCT USED FOR UNKNOWN INDICATION
     Route: 048
     Dates: start: 20100301, end: 20110531
  31. GLURENORM [Concomitant]
     Indication: PRODUCT USED FOR UNKNOWN INDICATION
     Route: 048
     Dates: start: 20100601, end: 20110531

REACTIONS (8)
  - FEMORAL ARTERY OCCLUSION [None]
  - AORTIC STENOSIS [None]
  - PERIPHERAL VASCULAR DISORDER [None]
  - SKIN ULCER [None]
  - SEPSIS [None]
  - CARDIAC FAILURE [None]
  - DEVICE RELATED INFECTION [None]
  - ACUTE PSYCHOSIS [None]
